APPROVED DRUG PRODUCT: CHLORMERODRIN HG 197
Active Ingredient: CHLORMERODRIN HG-197
Strength: 0.6-1.4mCi/ML
Dosage Form/Route: INJECTABLE;INJECTION
Application: N017269 | Product #001
Applicant: BRACCO DIAGNOSTICS INC
Approved: Approved Prior to Jan 1, 1982 | RLD: No | RS: No | Type: DISCN